FAERS Safety Report 7815992-8 (Version None)
Quarter: 2011Q4

REPORT INFORMATION
  Report Type: 
  Country: None (occurrence: None)
  Receive Date: 20111014
  Receipt Date: 20111006
  Transmission Date: 20120403
  Serious: Yes (Hospitalization)
  Sender: FDA-Public Use
  Company Number: IT-ROCHE-1002546

PATIENT
  Sex: Female

DRUGS (4)
  1. VINCRISTINE [Concomitant]
  2. CYCLOPHOSPHAMIDE [Concomitant]
  3. MABTHERA [Suspect]
     Indication: NON-HODGKIN'S LYMPHOMA
     Route: 042
     Dates: start: 20110930, end: 20110930
  4. DOXORUBICIN HCL [Concomitant]

REACTIONS (2)
  - DYSPNOEA [None]
  - SYNCOPE [None]
